FAERS Safety Report 6558794-5 (Version None)
Quarter: 2010Q1

REPORT INFORMATION
  Report Type: 
  Country: None (occurrence: None)
  Receive Date: 20100129
  Receipt Date: 20091229
  Transmission Date: 20100710
  Serious: No
  Sender: FDA-Public Use
  Company Number: US-BAYER-200917905BCC

PATIENT
  Age: 84 Year
  Sex: Female
  Weight: 54 kg

DRUGS (7)
  1. ALEVE (CAPLET) [Suspect]
     Indication: PROCTALGIA
     Route: 048
  2. ZOLOFT [Concomitant]
     Route: 065
  3. SEROQUEL [Concomitant]
     Route: 065
  4. UNKNOWN ANXIETY MEDICATION [Concomitant]
     Route: 065
  5. TYLENOL-500 [Concomitant]
     Route: 065
  6. UNKNOWN PAIN MEDICATION [Concomitant]
     Route: 065
  7. PHILIP'S COLON HEALTH [Concomitant]
     Indication: MEDICAL DIET
     Dosage: TOTAL DAILY DOSE: 1 DF
     Route: 048

REACTIONS (1)
  - PROCTALGIA [None]
